FAERS Safety Report 10644818 (Version 2)
Quarter: 2016Q4

REPORT INFORMATION
  Report Type: Report from Study
  Country: US (occurrence: US)
  Receive Date: 20141211
  Receipt Date: 20161205
  Transmission Date: 20170206
  Serious: No
  Sender: FDA-Public Use
  Company Number: US-AMGEN INC.-USASP2014094285

PATIENT
  Age: 50 Year
  Sex: Female

DRUGS (1)
  1. ENBREL [Suspect]
     Active Substance: ETANERCEPT
     Indication: PSORIATIC ARTHROPATHY
     Dosage: UNK
     Route: 065
     Dates: start: 20130928

REACTIONS (2)
  - Fibromyalgia [Not Recovered/Not Resolved]
  - Memory impairment [Not Recovered/Not Resolved]

NARRATIVE: CASE EVENT DATE: 2013
